FAERS Safety Report 11634264 (Version 1)
Quarter: 2015Q4

REPORT INFORMATION
  Report Type: Spontaneous
  Country: US (occurrence: US)
  Receive Date: 20151015
  Receipt Date: 20151015
  Transmission Date: 20160304
  Serious: No
  Sender: FDA-Public Use
  Company Number: ALCN2015US002893

PATIENT
  Sex: Female

DRUGS (3)
  1. NEVANAC [Suspect]
     Active Substance: NEPAFENAC
     Indication: RETINAL DETACHMENT
     Dosage: 1 GTT, TID
     Route: 047
     Dates: end: 20150430
  2. DORZOLAMIDE [Concomitant]
     Active Substance: DORZOLAMIDE
     Indication: RETINAL DETACHMENT
     Route: 047
  3. PREDNISOLONE. [Concomitant]
     Active Substance: PREDNISOLONE
     Indication: RETINAL DETACHMENT
     Route: 047

REACTIONS (1)
  - Eye pain [Not Recovered/Not Resolved]
